FAERS Safety Report 14440992 (Version 16)
Quarter: 2019Q1

REPORT INFORMATION
  Report Type: Report from Study
  Country: FR (occurrence: FR)
  Receive Date: 20180125
  Receipt Date: 20190219
  Transmission Date: 20190417
  Serious: Yes (Hospitalization, Disabling)
  Sender: FDA-Public Use
  Company Number: PHHO2018FR000865

PATIENT
  Age: 64 Year
  Sex: Female
  Weight: 42 kg

DRUGS (4)
  1. INC424 [Suspect]
     Active Substance: RUXOLITINIB
     Indication: ACUTE GRAFT VERSUS HOST DISEASE
     Dosage: UNK
     Route: 048
  2. MYCOPHENOLATE MOFETIL. [Suspect]
     Active Substance: MYCOPHENOLATE MOFETIL
     Indication: ACUTE GRAFT VERSUS HOST DISEASE
     Dosage: 15 MG/KG, TID
     Route: 048
     Dates: start: 20171018
  3. COMPARATOR INFLIXIMAB [Suspect]
     Active Substance: INFLIXIMAB
     Indication: ACUTE GRAFT VERSUS HOST DISEASE
     Dosage: 530 MG, QW
     Route: 048
     Dates: start: 20171108
  4. CICLOSPORIN [Suspect]
     Active Substance: CYCLOSPORINE
     Indication: PRODUCT USED FOR UNKNOWN INDICATION
     Dosage: 50 MG, QD
     Route: 048

REACTIONS (4)
  - Urinary bladder haemorrhage [Recovered/Resolved]
  - Renal failure [Recovered/Resolved]
  - Urinary tract infection viral [Recovered/Resolved]
  - Incorrect route of product administration [Unknown]

NARRATIVE: CASE EVENT DATE: 20171204
